FAERS Safety Report 8091666-6 (Version None)
Quarter: 2012Q1

REPORT INFORMATION
  Report Type: 
  Country: None (occurrence: None)
  Receive Date: 20120129
  Receipt Date: 20110920
  Transmission Date: 20120608
  Serious: No
  Sender: FDA-Public Use
  Company Number: US-ABBOTT-11P-163-0856696-00

PATIENT
  Sex: Male
  Weight: 78.542 kg

DRUGS (2)
  1. HUMIRA [Suspect]
     Indication: PSORIATIC ARTHROPATHY
     Dates: start: 20110919
  2. HUMIRA [Suspect]
     Route: 058
     Dates: end: 20110301

REACTIONS (1)
  - PSORIATIC ARTHROPATHY [None]
